FAERS Safety Report 5649453-1 (Version None)
Quarter: 2008Q1

REPORT INFORMATION
  Report Type: 
  Country: None (occurrence: None)
  Receive Date: 20080304
  Receipt Date: 20080221
  Transmission Date: 20080703
  Serious: Yes (Death)
  Sender: FDA-Public Use
  Company Number: US-TYCO HEALTHCARE/MALLINCKRODT-T200800280

PATIENT

DRUGS (1)
  1. METHADOSE [Suspect]

REACTIONS (4)
  - AUTONOMIC FAILURE SYNDROME [None]
  - BRAIN DEATH [None]
  - CEREBELLAR INFARCTION [None]
  - POISONING [None]
